FAERS Safety Report 7465174-7 (Version None)
Quarter: 2011Q2

REPORT INFORMATION
  Report Type: 
  Country: None (occurrence: None)
  Receive Date: 20110509
  Receipt Date: 20110429
  Transmission Date: 20111010
  Serious: Yes (Hospitalization)
  Sender: FDA-Public Use
  Company Number: US-JNJFOC-20100806967

PATIENT
  Sex: Male

DRUGS (4)
  1. LEVAQUIN [Suspect]
     Indication: BENIGN PROSTATIC HYPERPLASIA
     Route: 048
  2. LEVAQUIN [Suspect]
     Indication: DYSURIA
     Route: 048
  3. LEVAQUIN [Suspect]
     Indication: PROSTATITIS
     Route: 048
  4. LEVAQUIN [Suspect]
     Indication: PRODUCT USED FOR UNKNOWN INDICATION
     Route: 048

REACTIONS (2)
  - ROTATOR CUFF SYNDROME [None]
  - TENDONITIS [None]
